FAERS Safety Report 25973605 (Version 1)
Quarter: 2025Q4

REPORT INFORMATION
  Report Type: Spontaneous
  Country: CN (occurrence: CN)
  Receive Date: 20251029
  Receipt Date: 20251029
  Transmission Date: 20260118
  Serious: Yes (Other)
  Sender: BAXTER
  Company Number: None

PATIENT
  Age: 49 Year
  Sex: Female
  Weight: 59 kg

DRUGS (9)
  1. CYCLOPHOSPHAMIDE [Suspect]
     Active Substance: CYCLOPHOSPHAMIDE
     Indication: Breast cancer female
     Dosage: 0.845 G, QD
     Route: 041
     Dates: start: 20251014, end: 20251014
  2. SODIUM CHLORIDE [Suspect]
     Active Substance: SODIUM CHLORIDE
     Dosage: 5 ML (INTRAVENOUS PUSH) (TROPISETRON HYDROCHLORIDE 5 MG+ DEXAMETHASONE SODIUM PHOSPHATE 5 MG+0.9% SO
     Route: 042
     Dates: start: 202510
  3. SODIUM CHLORIDE [Suspect]
     Active Substance: SODIUM CHLORIDE
     Dosage: 100 ML (ONDANSETRON HYDROCHLORIDE + 0.9% SODIUM CHLORIDE)
     Route: 041
     Dates: start: 202510, end: 20251017
  4. EPIRUBICIN [Suspect]
     Active Substance: EPIRUBICIN
     Indication: Breast cancer female
     Dosage: 140 MG, QD
     Route: 041
     Dates: start: 20251014, end: 20251014
  5. SODIUM CHLORIDE [Suspect]
     Active Substance: SODIUM CHLORIDE
     Indication: Breast cancer female
     Dosage: 100 ML, QD (CYCLOPHOSPHAMIDE + 0.9% SODIUM CHLORIDE)
     Route: 041
     Dates: start: 20251014, end: 20251014
  6. SODIUM CHLORIDE [Suspect]
     Active Substance: SODIUM CHLORIDE
     Dosage: 100 ML, QD (PHARMORUBICIN + 0.9% SODIUM CHLORIDE)
     Route: 041
     Dates: start: 20251014, end: 20251014
  7. TROPISETRON HYDROCHLORIDE [Concomitant]
     Active Substance: TROPISETRON HYDROCHLORIDE
     Indication: Prophylaxis of nausea and vomiting
     Dosage: 5 MG (INTRAVENOUS PUSH)
     Route: 042
     Dates: start: 202510
  8. DEXAMETHASONE SODIUM PHOSPHATE [Concomitant]
     Active Substance: DEXAMETHASONE SODIUM PHOSPHATE
     Indication: Prophylaxis of nausea and vomiting
     Dosage: 5 MG (INTRAVENOUS PUSH)
     Route: 042
     Dates: start: 202510
  9. OMEPRAZOLE SODIUM [Concomitant]
     Active Substance: OMEPRAZOLE SODIUM
     Indication: Gastrointestinal disorder prophylaxis
     Dosage: 40 MG
     Route: 041
     Dates: start: 202510, end: 20251017

REACTIONS (4)
  - Sleep disorder [Recovering/Resolving]
  - Nausea [Recovering/Resolving]
  - Vomiting [Recovering/Resolving]
  - Initial insomnia [Unknown]

NARRATIVE: CASE EVENT DATE: 20251014
